FAERS Safety Report 11617806 (Version 4)
Quarter: 2015Q4

REPORT INFORMATION
  Report Type: Report from Study
  Country: BE (occurrence: BE)
  Receive Date: 20151009
  Receipt Date: 20151230
  Transmission Date: 20160304
  Serious: Yes (Hospitalization)
  Sender: FDA-Public Use
  Company Number: BE-ABBVIE-15P-013-1477754-00

PATIENT
  Sex: Female

DRUGS (5)
  1. DUODOPA [Suspect]
     Active Substance: CARBIDOPA\LEVODOPA
     Dosage: DOSAGE CONTINUOUSLY MONITORED AND ADJUSTED
     Route: 050
     Dates: start: 20110528, end: 20150309
  2. DUODOPA [Suspect]
     Active Substance: CARBIDOPA\LEVODOPA
     Dosage: AM 3ML, CD 2.4ML/H FOR 16HRS AND ED 0.5ML; ND:0.5ML/H FOR 8HRS
     Route: 050
     Dates: start: 20150309
  3. DUODOPA [Suspect]
     Active Substance: CARBIDOPA\LEVODOPA
     Indication: PARKINSON^S DISEASE
     Dosage: UNK
     Route: 050
     Dates: start: 20110523, end: 20110527
  4. DUODOPA [Suspect]
     Active Substance: CARBIDOPA\LEVODOPA
     Dosage: AM DOSE=2.5ML, CD=4.2ML/H FOR 16HRS AND ED=2ML
     Route: 050
     Dates: start: 20110527, end: 20110528
  5. STALEVO [Concomitant]
     Active Substance: CARBIDOPA\ENTACAPONE\LEVODOPA
     Indication: PRODUCT USED FOR UNKNOWN INDICATION
     Route: 065

REACTIONS (5)
  - Muscle contracture [Unknown]
  - Dyskinesia [Unknown]
  - Muscle spasms [Unknown]
  - Urinary tract infection [Unknown]
  - Muscle rigidity [Unknown]
